FAERS Safety Report 9970906 (Version 1)
Quarter: 2014Q1

REPORT INFORMATION
  Report Type: Report from Study
  Country: US (occurrence: US)
  Receive Date: 20140306
  Receipt Date: 20140306
  Transmission Date: 20141002
  Serious: No
  Sender: FDA-Public Use
  Company Number: US-ABBVIE-13P-163-1152430-00

PATIENT
  Age: 29 Year
  Sex: Female

DRUGS (1)
  1. HUMIRA [Suspect]
     Indication: ANAL FISTULA
     Route: 058
     Dates: start: 2012

REACTIONS (4)
  - Condition aggravated [Not Recovered/Not Resolved]
  - Anal fistula [Not Recovered/Not Resolved]
  - Off label use [Not Recovered/Not Resolved]
  - Incorrect product storage [Recovered/Resolved]
